FAERS Safety Report 9375048 (Version 1)
Quarter: 2013Q2

REPORT INFORMATION
  Report Type: Spontaneous
  Country: GB (occurrence: GB)
  Receive Date: 20130628
  Receipt Date: 20130628
  Transmission Date: 20140414
  Serious: Yes (Death, Hospitalization)
  Sender: FDA-Public Use
  Company Number: GB-BAUSCH-BL-2013-003863

PATIENT
  Age: 88 Year
  Sex: Female

DRUGS (2)
  1. PREDNISOLONE [Suspect]
     Indication: GRANULOMATOSIS WITH POLYANGIITIS
     Dosage: 50 MG 1/1 DAYS
     Route: 048
     Dates: end: 20130524
  2. ALENDRONIC ACID [Suspect]
     Indication: OSTEOPOROSIS PROPHYLAXIS
     Dosage: 70MG 1/1WEEKS
     Route: 048
     Dates: end: 20130523

REACTIONS (4)
  - Pneumonia aspiration [Not Recovered/Not Resolved]
  - Inflammatory marker increased [Not Recovered/Not Resolved]
  - Oesophageal perforation [Fatal]
  - Pneumomediastinum [Not Recovered/Not Resolved]
